FAERS Safety Report 8047284-9 (Version None)
Quarter: 2012Q1

REPORT INFORMATION
  Report Type: 
  Country: None (occurrence: None)
  Receive Date: 20120116
  Receipt Date: 20120111
  Transmission Date: 20120608
  Serious: Yes (Life-Threatening, Hospitalization)
  Sender: FDA-Public Use
  Company Number: MX-ELI_LILLY_AND_COMPANY-MX201201003537

PATIENT
  Sex: Female

DRUGS (1)
  1. GEMZAR [Suspect]
     Dosage: 200 MG, UNK
     Dates: start: 20100101, end: 20110101

REACTIONS (2)
  - IMMUNOGLOBULINS DECREASED [None]
  - PNEUMONIA [None]
